FAERS Safety Report 14311900 (Version 1)
Quarter: 2017Q4

REPORT INFORMATION
  Report Type: Spontaneous
  Country: GB (occurrence: GB)
  Receive Date: 20171221
  Receipt Date: 20171221
  Transmission Date: 20180321
  Serious: Yes (Life-Threatening, Hospitalization)
  Sender: FDA-Public Use
  Company Number: GB-CIPLA LTD.-2017GB25084

PATIENT

DRUGS (5)
  1. AMLODIPINE [Suspect]
     Active Substance: AMLODIPINE BESYLATE
     Dosage: UNK
     Route: 065
  2. ROSUVASTATIN. [Concomitant]
     Active Substance: ROSUVASTATIN
     Dosage: EACH NIGHT
     Route: 065
     Dates: start: 20161212
  3. ALLOPURINOL. [Concomitant]
     Active Substance: ALLOPURINOL
     Dosage: 2 DF, PER DAY
     Route: 065
     Dates: start: 20161212, end: 20171114
  4. DESUNIN [Concomitant]
     Active Substance: CHOLECALCIFEROL
     Dosage: MAINTENANCE DOSE: ONE TO THREE TABLETS DAILY.
     Route: 065
     Dates: start: 20170608, end: 20171114
  5. BISOPROLOL [Concomitant]
     Active Substance: BISOPROLOL
     Dosage: 1 DF, UNK
     Route: 065
     Dates: start: 20161212

REACTIONS (1)
  - Headache [Recovered/Resolved]

NARRATIVE: CASE EVENT DATE: 20171114
